FAERS Safety Report 7288115-4 (Version None)
Quarter: 2011Q1

REPORT INFORMATION
  Report Type: 
  Country: None (occurrence: None)
  Receive Date: 20110211
  Receipt Date: 20101021
  Transmission Date: 20110831
  Serious: No
  Sender: FDA-Public Use
  Company Number: US-BAYER-201022823BCC

PATIENT
  Sex: Female
  Weight: 63.636 kg

DRUGS (3)
  1. TRI-SPRINTEC [Concomitant]
  2. BUPROPION HCL [Concomitant]
     Dosage: UNK
  3. ALEVE [Suspect]
     Indication: HEADACHE
     Dosage: 2 DF, BID
     Route: 048
     Dates: start: 20101021, end: 20101021

REACTIONS (1)
  - NAUSEA [None]
